FAERS Safety Report 17027050 (Version 2)
Quarter: 2020Q4

REPORT INFORMATION
  Report Type: Spontaneous
  Country: JP (occurrence: JP)
  Receive Date: 20191113
  Receipt Date: 20201123
  Transmission Date: 20210113
  Serious: Yes (Other)
  Sender: FDA-Public Use
  Company Number: JP-PFIZER INC-2019485644

PATIENT
  Age: 84 Year
  Sex: Female

DRUGS (1)
  1. ALDACTONE A [Suspect]
     Active Substance: SPIRONOLACTONE
     Indication: HYPERTENSION
     Dosage: UNK
     Route: 048

REACTIONS (10)
  - Weight decreased [Unknown]
  - Obesity [Unknown]
  - Sciatica [Unknown]
  - Glomerulonephritis chronic [Unknown]
  - Malaise [Unknown]
  - Hyperkalaemia [Unknown]
  - Renal impairment [Unknown]
  - Constipation [Unknown]
  - Blood cholesterol increased [Unknown]
  - Faeces hard [Unknown]
